FAERS Safety Report 9938347 (Version 2)
Quarter: 2014Q1

REPORT INFORMATION
  Report Type: Report from Study
  Country: US (occurrence: US)
  Receive Date: 20140303
  Receipt Date: 20140303
  Transmission Date: 20141002
  Serious: No
  Sender: FDA-Public Use
  Company Number: US-ABBVIE-12P-163-1006875-00

PATIENT
  Age: 70 Year
  Sex: Female
  Weight: 83.08 kg

DRUGS (19)
  1. HUMIRA [Suspect]
     Indication: RHEUMATOID ARTHRITIS
  2. ACIPHEX [Concomitant]
     Indication: GASTROOESOPHAGEAL REFLUX DISEASE
     Dosage: 20 MG 1 TAB WEEKLY
  3. BONIVA [Concomitant]
     Indication: OSTEOPOROSIS
  4. CYMBALTA [Concomitant]
     Indication: FIBROMYALGIA
  5. DETROL LA [Concomitant]
     Indication: BLADDER DISORDER
  6. EPINEPHRINE [Concomitant]
     Indication: HYPERSENSITIVITY
  7. GABAPENTIN [Concomitant]
     Indication: NEURALGIA
  8. NITROGLYCERIN [Concomitant]
     Indication: OESOPHAGEAL SPASM
  9. NUCYNTA ER [Concomitant]
     Indication: NEURALGIA
  10. NUCYNTA [Concomitant]
     Indication: NEURALGIA
  11. PRAVASTATIN [Concomitant]
     Indication: BLOOD CHOLESTEROL INCREASED
     Dosage: AT BEDTIME
  12. ROPINIROL [Concomitant]
     Indication: RESTLESS LEGS SYNDROME
  13. TRAZODONE [Concomitant]
     Indication: INSOMNIA
     Dosage: AT BEDTIME
  14. XANAX [Concomitant]
     Indication: ANXIETY
  15. XOPENEX [Concomitant]
     Indication: ASTHMA
     Dosage: UP TO 6 TIMES DAILY AS NEEDED
     Route: 055
  16. ASTEPRO [Concomitant]
     Indication: HYPERSENSITIVITY
  17. BUDESONIDE [Concomitant]
     Indication: PRODUCT USED FOR UNKNOWN INDICATION
     Dosage: 1 INHALATION TWICE DAILY
     Route: 055
  18. OXYGEN [Concomitant]
     Indication: PRODUCT USED FOR UNKNOWN INDICATION
     Dosage: AT NIGHT WHEN SLEEPING
  19. ACIPHEX [Concomitant]
     Indication: GASTROOESOPHAGEAL REFLUX DISEASE

REACTIONS (6)
  - Injection site bruising [Recovering/Resolving]
  - Injection site pain [Recovered/Resolved]
  - Injection site mass [Recovered/Resolved]
  - Skin swelling [Recovered/Resolved]
  - Headache [Recovering/Resolving]
  - Device malfunction [Unknown]
